FAERS Safety Report 8169238-4 (Version None)
Quarter: 2012Q1

REPORT INFORMATION
  Report Type: 
  Country: None (occurrence: None)
  Receive Date: 20120228
  Receipt Date: 20120221
  Transmission Date: 20120608
  Serious: Yes (Death, Life-Threatening)
  Sender: FDA-Public Use
  Company Number: DE-ASTRAZENECA-2012SE11844

PATIENT
  Age: 82 Year
  Sex: Female

DRUGS (16)
  1. DOMINAL [Suspect]
     Route: 048
     Dates: start: 20110124, end: 20110124
  2. DOMINAL [Suspect]
     Route: 048
     Dates: start: 20110126, end: 20110211
  3. REPAGLINIDE [Concomitant]
     Route: 048
     Dates: start: 20110121, end: 20110211
  4. SEROQUEL [Suspect]
     Route: 048
     Dates: start: 20110127, end: 20110130
  5. DOMINAL [Suspect]
     Route: 048
     Dates: start: 20110122, end: 20110123
  6. LORAZEPAM [Suspect]
     Route: 048
     Dates: start: 20110218, end: 20110222
  7. LORAZEPAM [Suspect]
     Route: 048
  8. ASPIRIN [Concomitant]
     Route: 048
     Dates: end: 20110214
  9. SEROQUEL [Suspect]
     Route: 048
     Dates: start: 20110131, end: 20110203
  10. SEROQUEL [Suspect]
     Route: 048
     Dates: start: 20110204, end: 20110209
  11. LORAZEPAM [Suspect]
     Dosage: UP TO 2 MG/DAY AS REQUIRED
     Route: 048
     Dates: start: 20110125, end: 20110216
  12. REPAGLINIDE [Concomitant]
     Route: 048
     Dates: end: 20110120
  13. LORAZEPAM [Suspect]
     Dosage: 1 MG AS EXPIDET
     Route: 048
     Dates: start: 20110124, end: 20110124
  14. AXURA [Concomitant]
     Route: 048
     Dates: end: 20110131
  15. DOMINAL [Suspect]
     Route: 048
     Dates: start: 20110112, end: 20110121
  16. AXURA [Concomitant]
     Route: 048
     Dates: start: 20110201, end: 20110210

REACTIONS (4)
  - DEHYDRATION [None]
  - PNEUMONIA [None]
  - VOMITING [None]
  - DIARRHOEA [None]
